FAERS Safety Report 24740869 (Version 1)
Quarter: 2024Q4

REPORT INFORMATION
  Report Type: Spontaneous
  Country: CN (occurrence: CN)
  Receive Date: 20241217
  Receipt Date: 20241217
  Transmission Date: 20250115
  Serious: Yes (Hospitalization)
  Sender: ALCON
  Company Number: CN-ALCON LABORATORIES-ALC2024CN005397

PATIENT
  Age: 23 Year
  Sex: Female
  Weight: 50 kg

DRUGS (1)
  1. ALCAINE [Suspect]
     Active Substance: PROPARACAINE HYDROCHLORIDE
     Indication: Meibomian gland dysfunction
     Dosage: 1.0 DRP ONCE
     Route: 047
     Dates: start: 20241207, end: 20241207

REACTIONS (2)
  - Eye pruritus [Recovering/Resolving]
  - Corneal oedema [Recovering/Resolving]

NARRATIVE: CASE EVENT DATE: 20241207
